FAERS Safety Report 5688629-4 (Version None)
Quarter: 2008Q1

REPORT INFORMATION
  Report Type: 
  Country: None (occurrence: None)
  Receive Date: 20080331
  Receipt Date: 20080319
  Transmission Date: 20080703
  Serious: Yes (Other)
  Sender: FDA-Public Use
  Company Number: PHHY2008GB03540

PATIENT
  Age: 78 Year
  Sex: Male

DRUGS (1)
  1. AREDIA [Suspect]

REACTIONS (5)
  - DIZZINESS [None]
  - INFLUENZA LIKE ILLNESS [None]
  - PRESYNCOPE [None]
  - SURGERY [None]
  - VISION BLURRED [None]
